FAERS Safety Report 21077413 (Version 1)
Quarter: 2022Q3

REPORT INFORMATION
  Report Type: Spontaneous
  Country: US (occurrence: US)
  Receive Date: 20220713
  Receipt Date: 20220713
  Transmission Date: 20221027
  Serious: No
  Sender: FDA-Public Use
  Company Number: US-PFIZER INC-202200949324

PATIENT
  Age: 75 Year
  Sex: Female
  Weight: 59.42 kg

DRUGS (6)
  1. PAXLOVID [Suspect]
     Active Substance: NIRMATRELVIR\RITONAVIR
     Indication: COVID-19 treatment
     Dosage: [PF-07321332 300 MG]/[RITONAVIR 100 MG]; 2X/DAY X 5 DAYS
     Dates: start: 20220709
  2. ATORVASTATIN [Concomitant]
     Active Substance: ATORVASTATIN
     Dosage: UNK
  3. OMEPRAZOLE [Concomitant]
     Active Substance: OMEPRAZOLE
     Dosage: 40 MG
  4. AMLODIPINE [Concomitant]
     Active Substance: AMLODIPINE BESYLATE
     Dosage: 5 MG
  5. VALSARTAN [Concomitant]
     Active Substance: VALSARTAN
     Indication: Hypertension
     Dosage: 160 MG
  6. ESTRING [Concomitant]
     Active Substance: ESTRADIOL
     Dosage: 2MG

REACTIONS (5)
  - Dysgeusia [Not Recovered/Not Resolved]
  - Night sweats [Unknown]
  - Pruritus [Recovering/Resolving]
  - Confusional state [Unknown]
  - Cough [Unknown]

NARRATIVE: CASE EVENT DATE: 20220701
